FAERS Safety Report 4915955-6 (Version None)
Quarter: 2006Q1

REPORT INFORMATION
  Report Type: 
  Country: None (occurrence: None)
  Receive Date: 20060214
  Receipt Date: 20060124
  Transmission Date: 20060701
  Serious: Yes (Hospitalization, Other)
  Sender: FDA-Public Use
  Company Number: US200511000369

PATIENT
  Age: 80 Year
  Sex: Female
  Weight: 56.2 kg

DRUGS (13)
  1. FORTEO [Suspect]
     Indication: OSTEOPOROSIS
     Dates: start: 20050301
  2. FORTEO [Concomitant]
  3. PEN, DISPOSABLE [Concomitant]
  4. GUAIFENESIN (GUAIFENESIN) [Concomitant]
  5. MICARDIS HCT [Concomitant]
  6. ZOLOFT [Concomitant]
  7. CITRACAL (CALCIUM CITRATE) [Concomitant]
  8. ROCALTROL [Concomitant]
  9. SKELAXIN [Concomitant]
  10. KLONOPIN [Concomitant]
  11. CENTRUM SILVER (ASCORBIC ACID, CALCIUM, MINERALS NOS, RETINOL, TOCOPHE [Concomitant]
  12. DOXAZOSIN (DOXAZOSIN) [Concomitant]
  13. PROCRIT [Concomitant]

REACTIONS (8)
  - BACK INJURY [None]
  - FALL [None]
  - HEAD INJURY [None]
  - HEADACHE [None]
  - LIMB INJURY [None]
  - NECK PAIN [None]
  - POLYTRAUMATISM [None]
  - SCRATCH [None]
